FAERS Safety Report 24766125 (Version 1)
Quarter: 2024Q4

REPORT INFORMATION
  Report Type: Spontaneous
  Country: US (occurrence: US)
  Receive Date: 20241223
  Receipt Date: 20241223
  Transmission Date: 20250114
  Serious: No
  Sender: ALEXION PHARMACEUTICALS
  Company Number: US-AstraZeneca-CH-00736009AP

PATIENT

DRUGS (1)
  1. FASENRA [Suspect]
     Active Substance: BENRALIZUMAB
     Route: 065

REACTIONS (6)
  - Urticaria [Unknown]
  - Dysphagia [Unknown]
  - Arthropod bite [Unknown]
  - Drug dose omission by device [Unknown]
  - No adverse event [Unknown]
  - Needle issue [Unknown]
